FAERS Safety Report 24541521 (Version 4)
Quarter: 2025Q2

REPORT INFORMATION
  Report Type: Spontaneous
  Country: US (occurrence: US)
  Receive Date: 20241023
  Receipt Date: 20250619
  Transmission Date: 20250717
  Serious: Yes (Hospitalization, Other)
  Sender: SANOFI AVENTIS
  Company Number: US-SA-2024SA303972

PATIENT
  Age: 86 Year
  Sex: Male

DRUGS (1)
  1. DUPIXENT [Suspect]
     Active Substance: DUPILUMAB
     Indication: Dermatitis atopic
     Dosage: 300 MG, QOW
     Route: 058
     Dates: start: 20240919

REACTIONS (7)
  - Pleural effusion [Unknown]
  - Pericardial effusion [Unknown]
  - Blood pressure abnormal [Unknown]
  - Dizziness [Unknown]
  - Headache [Unknown]
  - Back disorder [Unknown]
  - Contusion [Unknown]
